FAERS Safety Report 7255144-6 (Version None)
Quarter: 2011Q1

REPORT INFORMATION
  Report Type: 
  Country: None (occurrence: None)
  Receive Date: 20110129
  Receipt Date: 20100203
  Transmission Date: 20110831
  Serious: No
  Sender: FDA-Public Use
  Company Number: US-ABBOTT-10P-163-0624173-00

PATIENT
  Sex: Male

DRUGS (3)
  1. MERCAPTOPURINE [Concomitant]
     Indication: CROHN'S DISEASE
  2. HUMIRA [Suspect]
     Indication: CROHN'S DISEASE
     Dates: start: 20090801, end: 20100101
  3. UNKNOWN ANTIHYPERTENSIVE [Concomitant]
     Indication: HYPERTENSION

REACTIONS (4)
  - MYALGIA [None]
  - LUPUS-LIKE SYNDROME [None]
  - NEURALGIA [None]
  - ARTHRALGIA [None]
